FAERS Safety Report 6637883-0 (Version None)
Quarter: 2010Q1

REPORT INFORMATION
  Report Type: 
  Country: None (occurrence: None)
  Receive Date: 20100317
  Receipt Date: 20100304
  Transmission Date: 20100710
  Serious: Yes (Other)
  Sender: FDA-Public Use
  Company Number: PHHY2010JP13480

PATIENT
  Age: 78 Year

DRUGS (9)
  1. ZOMETA [Suspect]
     Indication: METASTASES TO BONE
     Dosage: 1 DF, QMO
     Route: 042
  2. ZOMETA [Suspect]
     Dosage: 1 DF, Q3MO
     Route: 042
  3. DECADRON [Concomitant]
     Route: 048
  4. BLOPRESS [Concomitant]
     Route: 048
  5. TAKEPRON [Concomitant]
     Route: 048
  6. ASPIRIN [Concomitant]
     Route: 048
  7. ETHINYL ESTRADIOL [Concomitant]
     Route: 048
  8. ONEALFA [Concomitant]
     Route: 048
  9. TAXOTERE [Concomitant]
     Route: 042

REACTIONS (4)
  - BONE DISORDER [None]
  - ORAL SURGERY [None]
  - OSTEONECROSIS [None]
  - SWELLING [None]
